FAERS Safety Report 16403883 (Version 5)
Quarter: 2020Q3

REPORT INFORMATION
  Report Type: Report from Study
  Country: CO (occurrence: CO)
  Receive Date: 20190607
  Receipt Date: 20200908
  Transmission Date: 20201102
  Serious: Yes (Other)
  Sender: FDA-Public Use
  Company Number: CO-INCYTE CORPORATION-2018IN009137

PATIENT

DRUGS (5)
  1. JAKAVI [Suspect]
     Active Substance: RUXOLITINIB
     Indication: MYELOFIBROSIS
     Dosage: 10 MG, QD
     Route: 048
     Dates: start: 20180602
  2. JAKAVI [Suspect]
     Active Substance: RUXOLITINIB
     Dosage: 5 MG, QD
     Route: 048
  3. JAKAVI [Suspect]
     Active Substance: RUXOLITINIB
     Dosage: 15 MG, BID
     Route: 048
  4. JAKAVI [Suspect]
     Active Substance: RUXOLITINIB
     Dosage: 30 MG, QD
     Route: 048
  5. JAKAVI [Suspect]
     Active Substance: RUXOLITINIB
     Dosage: 15 MG, QD
     Route: 048

REACTIONS (17)
  - Discomfort [Unknown]
  - Pain [Unknown]
  - Arthralgia [Unknown]
  - Peripheral swelling [Unknown]
  - Crying [Unknown]
  - Memory impairment [Unknown]
  - Asthenia [Unknown]
  - Inappropriate schedule of product administration [Unknown]
  - Headache [Unknown]
  - Eating disorder [Unknown]
  - Hypertension [Unknown]
  - Disease recurrence [Unknown]
  - Pain in extremity [Unknown]
  - Depressed mood [Unknown]
  - General physical health deterioration [Unknown]
  - Malaise [Unknown]
  - Renal failure [Unknown]
